FAERS Safety Report 9215771 (Version 1)
Quarter: 2013Q2

REPORT INFORMATION
  Report Type: Spontaneous
  Country: US (occurrence: US)
  Receive Date: 20130408
  Receipt Date: 20130408
  Transmission Date: 20140414
  Serious: No
  Sender: FDA-Public Use
  Company Number: US-009507513-1304USA000077

PATIENT
  Age: 19 Year
  Sex: Female
  Weight: 90.25 kg

DRUGS (3)
  1. IMPLANON [Suspect]
     Indication: CONTRACEPTION
     Dosage: 1 ROD UP TO 3 YEARS
     Dates: start: 20110402
  2. GONADOTROPIN, CHORIONIC [Concomitant]
  3. PHENTERMINE [Concomitant]

REACTIONS (1)
  - Metrorrhagia [Unknown]
